FAERS Safety Report 10574356 (Version 1)
Quarter: 2014Q4

REPORT INFORMATION
  Report Type: Spontaneous
  Country: US (occurrence: US)
  Receive Date: 20141110
  Receipt Date: 20141110
  Transmission Date: 20150529
  Serious: No
  Sender: FDA-Public Use
  Company Number: US-BAYER-2014-165862

PATIENT
  Age: 54 Year
  Sex: Male
  Weight: 91 kg

DRUGS (7)
  1. FLOMAX [Concomitant]
     Active Substance: TAMSULOSIN HYDROCHLORIDE
  2. BAYER ASPIRIN REGIMEN REGULAR 325 MG STRENGTH [Suspect]
     Active Substance: ASPIRIN
     Indication: BACK PAIN
     Dosage: 1 DF, BID
     Route: 048
     Dates: start: 2009
  3. BAYER ASPIRIN REGIMEN REGULAR 325 MG STRENGTH [Suspect]
     Active Substance: ASPIRIN
     Indication: CARDIAC DISORDER
  4. BAYER [Suspect]
     Active Substance: ASPIRIN
     Indication: CARDIAC DISORDER
  5. MULTIVITAMIN [Concomitant]
     Active Substance: VITAMINS
  6. BAYER [Suspect]
     Active Substance: ASPIRIN
     Indication: BACK PAIN
     Dosage: 1 DF, BID
     Route: 048
     Dates: start: 2007, end: 2009
  7. ALEVE [Suspect]
     Active Substance: NAPROXEN SODIUM
     Indication: BACK PAIN
     Dosage: UNK UNK, PRN
     Route: 048

REACTIONS (3)
  - Drug ineffective [Unknown]
  - Incorrect drug administration duration [Unknown]
  - Incorrect drug administration duration [Unknown]

NARRATIVE: CASE EVENT DATE: 2007
